FAERS Safety Report 13310610 (Version 3)
Quarter: 2017Q2

REPORT INFORMATION
  Report Type: Spontaneous
  Country: US (occurrence: US)
  Receive Date: 20170309
  Receipt Date: 20170512
  Transmission Date: 20170830
  Serious: No
  Sender: FDA-Public Use
  Company Number: US-JNJFOC-20170112806

PATIENT
  Age: 18 Year
  Sex: Male

DRUGS (8)
  1. RISPERDAL [Suspect]
     Active Substance: RISPERIDONE
     Indication: SEIZURE
     Route: 048
     Dates: start: 201310, end: 201403
  2. INVEGA [Suspect]
     Active Substance: PALIPERIDONE
     Indication: HYPERTENSION
     Route: 048
  3. RISPERIDONE. [Suspect]
     Active Substance: RISPERIDONE
     Indication: HYPERTENSION
     Route: 048
     Dates: start: 200111
  4. RISPERIDONE. [Suspect]
     Active Substance: RISPERIDONE
     Indication: SEIZURE
     Route: 048
     Dates: start: 200111
  5. INVEGA [Suspect]
     Active Substance: PALIPERIDONE
     Indication: SEIZURE
     Route: 048
     Dates: start: 201401, end: 201408
  6. RISPERDAL [Suspect]
     Active Substance: RISPERIDONE
     Indication: HYPERTENSION
     Route: 048
     Dates: start: 201310, end: 201403
  7. INVEGA [Suspect]
     Active Substance: PALIPERIDONE
     Indication: HYPERTENSION
     Route: 048
     Dates: start: 201401, end: 201408
  8. INVEGA [Suspect]
     Active Substance: PALIPERIDONE
     Indication: SEIZURE
     Route: 048

REACTIONS (7)
  - Gynaecomastia [Unknown]
  - Product use in unapproved indication [Unknown]
  - Off label use [Unknown]
  - Drug ineffective [Unknown]
  - Blood cholesterol increased [Unknown]
  - Mental disorder [Unknown]
  - Weight increased [Unknown]

NARRATIVE: CASE EVENT DATE: 200111
